FAERS Safety Report 10069421 (Version 10)
Quarter: 2015Q4

REPORT INFORMATION
  Report Type: Spontaneous
  Country: CA (occurrence: CA)
  Receive Date: 20140410
  Receipt Date: 20151224
  Transmission Date: 20160304
  Serious: Yes (Hospitalization, Other)
  Sender: FDA-Public Use
  Company Number: CA-ROCHE-1377509

PATIENT
  Age: 41 Year
  Sex: Female

DRUGS (12)
  1. HYDROMORPHONE [Concomitant]
     Active Substance: HYDROMORPHONE
  2. VENTOLIN [Concomitant]
     Active Substance: ALBUTEROL SULFATE
  3. HYDROXYZINE [Suspect]
     Active Substance: HYDROXYZINE\HYDROXYZINE HYDROCHLORIDE
     Indication: RUBBER SENSITIVITY
     Route: 065
  4. CETIRIZINE [Concomitant]
     Active Substance: CETIRIZINE HYDROCHLORIDE
  5. NAPROXEN. [Concomitant]
     Active Substance: NAPROXEN
  6. CYMBALTA [Concomitant]
     Active Substance: DULOXETINE HYDROCHLORIDE
  7. HYDROXYZINE [Suspect]
     Active Substance: HYDROXYZINE\HYDROXYZINE HYDROCHLORIDE
     Indication: ANAPHYLACTIC REACTION
  8. SYMBICORT [Concomitant]
     Active Substance: BUDESONIDE\FORMOTEROL FUMARATE DIHYDRATE
  9. PLAQUENIL [Concomitant]
     Active Substance: HYDROXYCHLOROQUINE SULFATE
  10. XOLAIR [Suspect]
     Active Substance: OMALIZUMAB
     Indication: CHRONIC SPONTANEOUS URTICARIA
     Route: 058
     Dates: start: 20130110
  11. XOLAIR [Suspect]
     Active Substance: OMALIZUMAB
     Indication: ASTHMA
     Route: 058
     Dates: start: 20150422
  12. TECTA [Concomitant]
     Active Substance: PANTOPRAZOLE MAGNESIUM

REACTIONS (20)
  - Disease progression [Unknown]
  - Rubber sensitivity [Unknown]
  - Multiple allergies [Unknown]
  - Decreased activity [Unknown]
  - Anaphylactic reaction [Unknown]
  - Mouth ulceration [Unknown]
  - Hypophagia [Unknown]
  - Hyperaesthesia [Unknown]
  - Smoke sensitivity [Unknown]
  - Malaise [Unknown]
  - Food allergy [Unknown]
  - Cellulitis [Unknown]
  - Blood immunoglobulin E increased [Unknown]
  - Mechanical urticaria [Unknown]
  - Asthma [Unknown]
  - Blood potassium decreased [Unknown]
  - Drug hypersensitivity [Unknown]
  - Feeding disorder [Unknown]
  - Mast cell activation syndrome [Unknown]
  - Stomatitis [Unknown]

NARRATIVE: CASE EVENT DATE: 20140303
